FAERS Safety Report 19591384 (Version 2)
Quarter: 2022Q1

REPORT INFORMATION
  Report Type: Spontaneous
  Country: US (occurrence: US)
  Receive Date: 20210722
  Receipt Date: 20220117
  Transmission Date: 20220424
  Serious: Yes (Other)
  Sender: FDA-Public Use
  Company Number: US-GILEAD-2021-0541372

PATIENT
  Age: 56 Year
  Sex: Male
  Weight: 81.633 kg

DRUGS (52)
  1. VIREAD [Suspect]
     Active Substance: TENOFOVIR DISOPROXIL FUMARATE
     Indication: HIV infection
     Dosage: UNK
     Route: 048
     Dates: start: 200912, end: 201408
  2. BUPROPION [Concomitant]
     Active Substance: BUPROPION
  3. INTELENCE [Concomitant]
     Active Substance: ETRAVIRINE
  4. ISENTRESS [Concomitant]
     Active Substance: RALTEGRAVIR POTASSIUM
  5. NORVIR [Concomitant]
     Active Substance: RITONAVIR
  6. PREZISTA [Concomitant]
     Active Substance: DARUNAVIR ETHANOLATE
  7. TIVICAY [Concomitant]
     Active Substance: DOLUTEGRAVIR SODIUM
  8. ACYCLOVIR [Concomitant]
     Active Substance: ACYCLOVIR
  9. AMOXCLAV [AMOXICILLIN TRIHYDRATE;CLAVULANATE POTASSIUM] [Concomitant]
  10. ANDROGEL [Concomitant]
     Active Substance: TESTOSTERONE
  11. ATORVASTATIN [Concomitant]
     Active Substance: ATORVASTATIN
  12. AZELASTINE [Concomitant]
     Active Substance: AZELASTINE
  13. AZITHROMYCIN [Concomitant]
     Active Substance: AZITHROMYCIN
  14. CARVEDILOL [Concomitant]
     Active Substance: CARVEDILOL
  15. CIPROFLOXACIN [Concomitant]
     Active Substance: CIPROFLOXACIN
  16. CLENPIQ [Concomitant]
     Active Substance: ANHYDROUS CITRIC ACID\MAGNESIUM OXIDE\SODIUM PICOSULFATE
  17. COLCHICINE [Concomitant]
     Active Substance: COLCHICINE
  18. CREON [Concomitant]
     Active Substance: PANCRELIPASE AMYLASE\PANCRELIPASE LIPASE\PANCRELIPASE PROTEASE
  19. DICLOFENAC [Concomitant]
     Active Substance: DICLOFENAC
  20. DIPHENOXYLATE HYDROCHLORIDE AND ATROPINE SULFATE [Concomitant]
     Active Substance: ATROPINE SULFATE\DIPHENOXYLATE HYDROCHLORIDE
  21. DOXYCYCLINE [Concomitant]
     Active Substance: DOXYCYCLINE
  22. ALUMINUM CHLORIDE [Concomitant]
     Active Substance: ALUMINUM CHLORIDE
  23. FENOFIBRATE [Concomitant]
     Active Substance: FENOFIBRATE
  24. FINASTERIDE [Concomitant]
     Active Substance: FINASTERIDE
  25. FLUOROURACIL [Concomitant]
     Active Substance: FLUOROURACIL
  26. IMIQUIMOD [Concomitant]
     Active Substance: IMIQUIMOD
  27. INTELENCE [Concomitant]
     Active Substance: ETRAVIRINE
  28. MELOXICAM [Concomitant]
     Active Substance: MELOXICAM
  29. METHYLPREDNISOLONE [Concomitant]
     Active Substance: METHYLPREDNISOLONE
  30. MINERAL OIL LIGHT [Concomitant]
  31. MONTELUKAST [Concomitant]
     Active Substance: MONTELUKAST SODIUM
  32. ONDANSETRON [Concomitant]
     Active Substance: ONDANSETRON
  33. OSELTAMIVIR [Concomitant]
     Active Substance: OSELTAMIVIR
  34. OXYCODONE [Concomitant]
     Active Substance: OXYCODONE
  35. ASPIRIN\OXYCODONE HYDROCHLORIDE [Concomitant]
     Active Substance: ASPIRIN\OXYCODONE HYDROCHLORIDE
  36. PANTOPRAZOLE [Concomitant]
     Active Substance: PANTOPRAZOLE
  37. PENNSAID [Concomitant]
     Active Substance: DICLOFENAC SODIUM
  38. PREDNISONE [Concomitant]
     Active Substance: PREDNISONE
  39. PREVALITE [Concomitant]
     Active Substance: CHOLESTYRAMINE
  40. PROMETHAZINE [Concomitant]
     Active Substance: PROMETHAZINE HYDROCHLORIDE
  41. PROMETHAZINE - CODEINE [CODEINE PHOSPHATE;PROMETHAZINE HYDROCHLORIDE] [Concomitant]
  42. SHINGRIX [Concomitant]
     Active Substance: RECOMBINANT VARICELLA ZOSTER VIRUS (VZV) GLYCOPROTEIN E
  43. SULFAMETHOXAZOLE\TRIMETHOPRIM [Concomitant]
     Active Substance: SULFAMETHOXAZOLE\TRIMETHOPRIM
  44. TEMAZEPAM [Concomitant]
     Active Substance: TEMAZEPAM
  45. TESTOSTERONE [Concomitant]
     Active Substance: TESTOSTERONE
  46. TRAMADOL [Concomitant]
     Active Substance: TRAMADOL
  47. TRETINOIN [Concomitant]
     Active Substance: TRETINOIN
  48. VALACYCLOVIR HYDROCHLORIDE [Concomitant]
     Active Substance: VALACYCLOVIR HYDROCHLORIDE
  49. VENTOLIN [Concomitant]
     Active Substance: ALBUTEROL SULFATE
  50. WARFARIN [Concomitant]
     Active Substance: WARFARIN
  51. WELCHOL [Concomitant]
     Active Substance: COLESEVELAM HYDROCHLORIDE
  52. LOSARTAN [Concomitant]
     Active Substance: LOSARTAN

REACTIONS (9)
  - Chronic kidney disease [Unknown]
  - Pain [Not Recovered/Not Resolved]
  - Emotional distress [Not Recovered/Not Resolved]
  - Anxiety [Not Recovered/Not Resolved]
  - Anhedonia [Not Recovered/Not Resolved]
  - Renal impairment [Unknown]
  - Laboratory test abnormal [Unknown]
  - Renal cyst [Unknown]
  - Blood creatinine increased [Unknown]

NARRATIVE: CASE EVENT DATE: 20140601
